FAERS Safety Report 9516406 (Version 4)
Quarter: 2014Q3

REPORT INFORMATION
  Report Type: Spontaneous
  Country: US (occurrence: US)
  Receive Date: 20130911
  Receipt Date: 20140909
  Transmission Date: 20150326
  Serious: Yes (Hospitalization, Other)
  Sender: FDA-Public Use
  Company Number: US-PFIZER INC-2013259925

PATIENT
  Age: 70 Year
  Sex: Male
  Weight: 134 kg

DRUGS (20)
  1. AMLODIPINE BESYLATE. [Concomitant]
     Active Substance: AMLODIPINE BESYLATE
     Dosage: 10 MG, UNK
  2. NOVOLIN N [Concomitant]
     Active Substance: INSULIN HUMAN
     Dosage: 100 UNITS/ML CARTRDG UNIT/ML
  3. TIKOSYN [Suspect]
     Active Substance: DOFETILIDE
     Indication: ATRIAL FIBRILLATION
     Dosage: UNK
     Dates: start: 2013
  4. INSULIN [Concomitant]
     Active Substance: INSULIN NOS
     Indication: DIABETES MELLITUS
     Dosage: UNK
     Route: 051
  5. WARFARIN SODIUM. [Concomitant]
     Active Substance: WARFARIN SODIUM
     Dosage: 2 MG, UNK
  6. ADVAIR DISKUS [Concomitant]
     Active Substance: FLUTICASONE PROPIONATE\SALMETEROL XINAFOATE
     Dosage: (FLUTICASONE PROPIONATE 250 MCG AND SALMETEROL 50 MCG) MCG/DOSE
  7. ANDROGEL [Concomitant]
     Active Substance: TESTOSTERONE
     Dosage: 1% GEL PUMP 1.25 GRAM/ ACTIVATION (1%)
  8. CARVEDILOL. [Concomitant]
     Active Substance: CARVEDILOL
     Dosage: 25 MG, UNK
  9. TRILIPIX DR [Concomitant]
     Dosage: 135 MG, UNK
  10. AZITHROMYCIN [Concomitant]
     Active Substance: AZITHROMYCIN ANHYDROUS
     Dosage: 500 MG, DAILY
  11. ETHAMBUTOL [Concomitant]
     Active Substance: ETHAMBUTOL HYDROCHLORIDE
     Dosage: 400 MG, 3X/DAY
  12. LEVOFLOXACIN [Concomitant]
     Active Substance: LEVOFLOXACIN
     Dosage: 500 MG, DAILY
  13. NOVOLIN R [Concomitant]
     Active Substance: INSULIN HUMAN
     Dosage: 100 UNITS/ML CARTRDG UNIT/ML
  14. SIMVASTATIN. [Concomitant]
     Active Substance: SIMVASTATIN
     Dosage: 20 MG, UNK
  15. LEVOXYL [Concomitant]
     Active Substance: LEVOTHYROXINE SODIUM
     Dosage: 50 UG, UNK
  16. PRO AIR HFA [Concomitant]
     Dosage: 90 UG, UNK
  17. METFORMIN [Concomitant]
     Active Substance: METFORMIN HYDROCHLORIDE
     Indication: DIABETES MELLITUS
     Dosage: 500 MG, UNK
  18. SPIRIVA [Concomitant]
     Active Substance: TIOTROPIUM BROMIDE MONOHYDRATE
     Dosage: 18 UG, UNK
  19. ITRACONAZOLE. [Concomitant]
     Active Substance: ITRACONAZOLE
     Dosage: 200 MG, 2X/DAY
  20. DIOVAN [Concomitant]
     Active Substance: VALSARTAN
     Dosage: 80 MG, UNK

REACTIONS (4)
  - Aspergillus infection [Unknown]
  - Respiratory tract infection bacterial [Unknown]
  - Respiratory tract infection viral [Unknown]
  - Respiratory arrest [Unknown]

NARRATIVE: CASE EVENT DATE: 20130924
